FAERS Safety Report 7843591 (Version 4)
Quarter: 2014Q4

REPORT INFORMATION
  Report Type: Report from Study
  Country: DE (occurrence: DE)
  Receive Date: 20110307
  Receipt Date: 20141127
  Transmission Date: 20150529
  Serious: Yes (Death, Hospitalization)
  Sender: FDA-Public Use
  Company Number: DE-ROCHE-750306

PATIENT
  Age: 84 Year
  Sex: Female
  Weight: 59 kg

DRUGS (9)
  1. TOREM [Concomitant]
     Active Substance: TORSEMIDE
  2. INSULIN [Concomitant]
     Active Substance: INSULIN NOS
  3. L-THYROXINE [Concomitant]
     Active Substance: LEVOTHYROXINE
  4. CAPECITABINE. [Suspect]
     Active Substance: CAPECITABINE
     Indication: BREAST CANCER
     Dosage: ROUTE AND DOSE: AS PER PROTOCOL, DATE OF LAST DOSE PRIOR TO SAE: 19 FEB 2011, TERMINATED
     Route: 048
  5. COAPROVEL [Concomitant]
     Active Substance: HYDROCHLOROTHIAZIDE\IRBESARTAN
     Dosage: DRUG: COAPROVEL 300/125, DAILY DOSE: 1-0-1 DOSE FORM
     Route: 065
  6. PANTEXOL [Concomitant]
     Dosage: PANTEXOL 40
     Route: 065
  7. SPIRIVA [Concomitant]
     Active Substance: TIOTROPIUM BROMIDE MONOHYDRATE
  8. BEVACIZUMAB [Suspect]
     Active Substance: BEVACIZUMAB
     Indication: BREAST CANCER
     Dosage: ON DAY 1, ROUTE AND DOSE: AS PER PROTOCOL, DATE OF LAST DOSE PRIOR TO SAE: 15 FEB 2011,TERMINATED
     Route: 042
  9. APROVEL [Concomitant]
     Active Substance: IRBESARTAN
     Dosage: REPORTED AS: APROVEL 300, DAILY DOSE: 1X
     Route: 065

REACTIONS (3)
  - Asthenia [Fatal]
  - General physical health deterioration [Recovered/Resolved]
  - Subileus [Recovered/Resolved]

NARRATIVE: CASE EVENT DATE: 20101223
